FAERS Safety Report 24859187 (Version 1)
Quarter: 2025Q1

REPORT INFORMATION
  Report Type: Report from Study
  Country: US (occurrence: US)
  Receive Date: 20250118
  Receipt Date: 20250118
  Transmission Date: 20250409
  Serious: Yes (Other)
  Sender: NOVARTIS
  Company Number: US-002147023-NVSC2024US089807

PATIENT
  Sex: Female

DRUGS (1)
  1. KESIMPTA [Suspect]
     Active Substance: OFATUMUMAB
     Indication: Product used for unknown indication
     Dosage: 20 MG, QMO
     Route: 058

REACTIONS (10)
  - Multiple sclerosis relapse [Unknown]
  - Movement disorder [Unknown]
  - Hypoaesthesia [Recovered/Resolved]
  - Alopecia [Unknown]
  - Illness [Unknown]
  - Fatigue [Unknown]
  - Hypersomnia [Unknown]
  - Diarrhoea [Unknown]
  - Decreased appetite [Unknown]
  - COVID-19 [Unknown]
